FAERS Safety Report 5295866-X (Version None)
Quarter: 2007Q2

REPORT INFORMATION
  Report Type: 
  Country: None (occurrence: None)
  Receive Date: 20070413
  Receipt Date: 20070329
  Transmission Date: 20071010
  Serious: Yes (Hospitalization)
  Sender: FDA-Public Use
  Company Number: GB-JNJFOC-20070400361

PATIENT
  Sex: Female
  Weight: 158 kg

DRUGS (7)
  1. REMICADE [Suspect]
     Indication: RHEUMATOID ARTHRITIS
     Route: 042
  2. METHOTREXATE [Concomitant]
  3. AMITRIPTYLINE HCL [Concomitant]
  4. CALCICHEW [Concomitant]
  5. CO-DYDRAMOL [Concomitant]
  6. FOLIC ACID [Concomitant]
  7. LOSEC [Concomitant]

REACTIONS (2)
  - ANKLE FRACTURE [None]
  - LOWER LIMB FRACTURE [None]
